FAERS Safety Report 25723367 (Version 1)
Quarter: 2025Q3

REPORT INFORMATION
  Report Type: Spontaneous
  Country: US (occurrence: US)
  Receive Date: 20250825
  Receipt Date: 20250825
  Transmission Date: 20251020
  Serious: No
  Sender: MYLAN
  Company Number: US-MYLANLABS-2025M1069345

PATIENT
  Age: 67 Year
  Sex: Female

DRUGS (4)
  1. BREYNA [Suspect]
     Active Substance: BUDESONIDE\FORMOTEROL FUMARATE
     Indication: Asthma
     Dosage: 80 PER 4.5 MICROGRAM, QID (FOUR TIMES A DAY)
     Dates: start: 202506
  2. BREYNA [Suspect]
     Active Substance: BUDESONIDE\FORMOTEROL FUMARATE
     Dosage: 80 PER 4.5 MICROGRAM, QID (FOUR TIMES A DAY)
     Route: 055
     Dates: start: 202506
  3. BREYNA [Suspect]
     Active Substance: BUDESONIDE\FORMOTEROL FUMARATE
     Dosage: 80 PER 4.5 MICROGRAM, QID (FOUR TIMES A DAY)
     Route: 055
     Dates: start: 202506
  4. BREYNA [Suspect]
     Active Substance: BUDESONIDE\FORMOTEROL FUMARATE
     Dosage: 80 PER 4.5 MICROGRAM, QID (FOUR TIMES A DAY)
     Dates: start: 202506

REACTIONS (2)
  - Off label use [Unknown]
  - Device delivery system issue [Unknown]

NARRATIVE: CASE EVENT DATE: 20250601
